FAERS Safety Report 6749493-5 (Version None)
Quarter: 2010Q2

REPORT INFORMATION
  Report Type: 
  Country: None (occurrence: None)
  Receive Date: 20100601
  Receipt Date: 20100527
  Transmission Date: 20101027
  Serious: Yes (Other)
  Sender: FDA-Public Use
  Company Number: DE-ROCHE-705995

PATIENT
  Sex: Female

DRUGS (4)
  1. BEVACIZUMAB [Suspect]
     Dosage: DATE OF LAST DOSE PRIOR TO SAE: 17 MAY 2010
     Route: 042
     Dates: start: 20091214
  2. DOCETAXEL [Suspect]
     Dosage: DATE OF LST DOSE PRIOR TO SAE: 17 MAY 2010
     Route: 042
     Dates: start: 20100315
  3. EPIRUBICIN [Suspect]
     Dosage: DATE OF LST DOSE PRIOR TO SAE: 22 FEBRUARY 2010
     Route: 042
     Dates: start: 20091214
  4. CYCLOPHOSPHAMIDE [Suspect]
     Dosage: DATE OF LST DOSE PRIOR TO SAE: 22 FEBRUARY 2010
     Route: 042
     Dates: start: 20091214

REACTIONS (1)
  - PALMAR-PLANTAR ERYTHRODYSAESTHESIA SYNDROME [None]
